FAERS Safety Report 25218179 (Version 9)
Quarter: 2025Q3

REPORT INFORMATION
  Report Type: Report from Study
  Country: BR (occurrence: BR)
  Receive Date: 20250421
  Receipt Date: 20250709
  Transmission Date: 20251020
  Serious: Yes (Hospitalization, Other)
  Sender: TAKEDA
  Company Number: BR-TAKEDA-2025TUS030886

PATIENT
  Age: 48 Year
  Sex: Female

DRUGS (8)
  1. TEDUGLUTIDE [Suspect]
     Active Substance: TEDUGLUTIDE
     Indication: Short-bowel syndrome
  2. TEDUGLUTIDE [Suspect]
     Active Substance: TEDUGLUTIDE
     Indication: Functional gastrointestinal disorder
     Dosage: 0.05 MILLIGRAM/KILOGRAM, QD
     Dates: start: 20250320
  3. TEDUGLUTIDE [Suspect]
     Active Substance: TEDUGLUTIDE
     Dosage: 0.005 MILLIGRAM/KILOGRAM, QD
  4. TEDUGLUTIDE [Suspect]
     Active Substance: TEDUGLUTIDE
     Dosage: 0.05 MILLIGRAM/KILOGRAM, QD
  5. TEDUGLUTIDE [Suspect]
     Active Substance: TEDUGLUTIDE
  6. TPN [Concomitant]
     Active Substance: AMINO ACIDS\DEXTROSE\ELECTROLYTES NOS\SOYBEAN OIL
  7. ZOLPIDEM [Concomitant]
     Active Substance: ZOLPIDEM TARTRATE
  8. RIVOTRIL [Concomitant]
     Active Substance: CLONAZEPAM

REACTIONS (16)
  - Abdominal pain upper [Unknown]
  - Vomiting [Unknown]
  - Intestinal obstruction [Unknown]
  - Device related infection [Unknown]
  - Micturition disorder [Unknown]
  - Frequent bowel movements [Unknown]
  - Off label use [Unknown]
  - Overdose [Unknown]
  - Product prescribing error [Unknown]
  - Product use issue [Unknown]
  - Confusional state [Unknown]
  - Circumstance or information capable of leading to medication error [Unknown]
  - Dose calculation error [Unknown]
  - Treatment noncompliance [Unknown]
  - Inappropriate schedule of product administration [Recovered/Resolved]
  - Incorrect dose administered [Unknown]

NARRATIVE: CASE EVENT DATE: 20250319
